FAERS Safety Report 5870655-3 (Version None)
Quarter: 2008Q3

REPORT INFORMATION
  Report Type: 
  Country: None (occurrence: None)
  Receive Date: 20080904
  Receipt Date: 20080826
  Transmission Date: 20090109
  Serious: Yes (Other)
  Sender: FDA-Public Use
  Company Number: PHEH2008US04841

PATIENT
  Age: 66 Year
  Sex: Female

DRUGS (3)
  1. VIVELLE-DOT [Suspect]
     Indication: MENOPAUSE
     Dosage: 0.0375 MG DAILY, 2 X WEEK
     Route: 062
     Dates: end: 20080101
  2. VIVELLE-DOT [Suspect]
     Dosage: 0.05 MG DAILY, 2 X WEEK
     Route: 062
     Dates: start: 20080101, end: 20080501
  3. ADVIL LIQUI-GELS [Suspect]
     Indication: PAIN

REACTIONS (10)
  - ARTHRITIS [None]
  - BACK PAIN [None]
  - DEPRESSION [None]
  - HOT FLUSH [None]
  - HYPERAESTHESIA [None]
  - INSOMNIA [None]
  - PAIN [None]
  - PHYSIOTHERAPY [None]
  - SWELLING [None]
  - TENDONITIS [None]
